FAERS Safety Report 6923543-5 (Version None)
Quarter: 2010Q3

REPORT INFORMATION
  Report Type: 
  Country: None (occurrence: None)
  Receive Date: 20100813
  Receipt Date: 20100806
  Transmission Date: 20110219
  Serious: Yes (Hospitalization)
  Sender: FDA-Public Use
  Company Number: A0871426A

PATIENT
  Age: 63 Year
  Sex: Female
  Weight: 83.6 kg

DRUGS (10)
  1. PAZOPANIB [Suspect]
     Indication: METASTATIC RENAL CELL CARCINOMA
     Dosage: 400MG TWICE PER DAY
     Route: 048
     Dates: start: 20100617
  2. METOLAZONE [Concomitant]
     Dosage: 5MG PER DAY
     Dates: start: 20080101
  3. METOPROLOL TARTRATE [Concomitant]
     Indication: HYPERTENSION
     Dosage: 50MG TWICE PER DAY
     Dates: start: 19800101
  4. LEVOTHYROXINE [Concomitant]
     Indication: HYPOTHYROIDISM
     Dates: start: 19980101
  5. LASIX [Concomitant]
     Indication: FLUID RETENTION
     Dates: start: 20080901
  6. MORPHINE [Concomitant]
     Indication: PAIN
     Dosage: 10MG PER DAY
     Dates: start: 20100706
  7. KLOR-CON [Concomitant]
     Indication: SUPPLEMENTATION THERAPY
     Dosage: 10MEQ TWICE PER DAY
     Dates: start: 20080901
  8. WARFARIN [Concomitant]
     Dosage: 5MG AT NIGHT
     Dates: start: 20070601
  9. PROCHLORPERAZINE [Concomitant]
     Indication: NAUSEA
     Dosage: 10MG FOUR TIMES PER DAY
     Dates: start: 20080101
  10. LEXAPRO [Concomitant]
     Indication: DEPRESSION
     Dosage: 10MG PER DAY
     Route: 048
     Dates: start: 20070101

REACTIONS (5)
  - ASTHENIA [None]
  - DEHYDRATION [None]
  - HALLUCINATION [None]
  - NAUSEA [None]
  - VOMITING [None]
